FAERS Safety Report 9750021 (Version 1)
Quarter: 2013Q4

REPORT INFORMATION
  Report Type: Spontaneous
  Country: None (occurrence: DE)
  Receive Date: 20131212
  Receipt Date: 20131212
  Transmission Date: 20140711
  Serious: No
  Sender: FDA-Public Use
  Company Number: DE-GILEAD-DE-CVT-090640

PATIENT
  Age: 59 Year
  Sex: Male

DRUGS (4)
  1. RANEXA [Suspect]
     Indication: ANGINA PECTORIS
     Route: 048
     Dates: start: 200907, end: 2009
  2. RANEXA [Suspect]
     Route: 048
     Dates: start: 2009, end: 2009
  3. RANEXA [Suspect]
     Route: 048
     Dates: start: 2009, end: 2009
  4. RANEXA [Suspect]
     Route: 048
     Dates: start: 2009

REACTIONS (2)
  - Chest discomfort [Not Recovered/Not Resolved]
  - Arrhythmia [Not Recovered/Not Resolved]
